FAERS Safety Report 8498646-7 (Version None)
Quarter: 2012Q3

REPORT INFORMATION
  Report Type: 
  Country: None (occurrence: None)
  Receive Date: 20120709
  Receipt Date: 20120628
  Transmission Date: 20120928
  Serious: No
  Sender: FDA-Public Use
  Company Number: US-AMGEN-USASP2012040171

PATIENT
  Age: 45 Year
  Sex: Female

DRUGS (4)
  1. ENBREL [Suspect]
     Indication: PSORIATIC ARTHROPATHY
  2. TREXALL [Concomitant]
     Dosage: 3 MG, UNK
     Dates: start: 20120523
  3. ENBREL [Suspect]
     Indication: PSORIASIS
  4. ENBREL [Suspect]
     Indication: RHEUMATOID ARTHRITIS
     Dosage: 50 MG, QWK
     Dates: start: 20110504

REACTIONS (11)
  - PSORIASIS [None]
  - INJECTION SITE ERYTHEMA [None]
  - CRYING [None]
  - ARTHRALGIA [None]
  - RASH GENERALISED [None]
  - INJECTION SITE URTICARIA [None]
  - FATIGUE [None]
  - INJECTION SITE RASH [None]
  - MOUTH ULCERATION [None]
  - PAIN IN JAW [None]
  - ORAL MUCOSAL BLISTERING [None]
